FAERS Safety Report 23663292 (Version 1)
Quarter: 2024Q1

REPORT INFORMATION
  Report Type: Spontaneous
  Country: SK (occurrence: SK)
  Receive Date: 20240322
  Receipt Date: 20240322
  Transmission Date: 20240410
  Serious: Yes (Other)
  Sender: FDA-Public Use
  Company Number: None

PATIENT
  Age: 57 Year
  Sex: Female

DRUGS (1)
  1. CARBOPLATIN [Suspect]
     Active Substance: CARBOPLATIN
     Indication: Product used for unknown indication
     Dosage: FORM OF ADMIN.- CONCENTRATE FOR SOLUTION FOR INFUSION

REACTIONS (5)
  - Loss of consciousness [Recovering/Resolving]
  - Shock [Recovering/Resolving]
  - Urinary incontinence [Recovering/Resolving]
  - Dysphonia [Recovering/Resolving]
  - Hypotension [Recovering/Resolving]

NARRATIVE: CASE EVENT DATE: 20240125
